FAERS Safety Report 10302783 (Version 1)
Quarter: 2014Q3

REPORT INFORMATION
  Report Type: Spontaneous
  Country: GB (occurrence: None)
  Receive Date: 20140708
  Receipt Date: 20140708
  Transmission Date: 20150326
  Serious: Yes (Other)
  Sender: FDA-Public Use
  Company Number: AUR-APL-2014-06195

PATIENT
  Age: 70 Year
  Sex: Male
  Weight: 88 kg

DRUGS (2)
  1. LANSOPRAZOLE (LANSOPRAZOLE) [Concomitant]
     Active Substance: LANSOPRAZOLE
  2. CIPROFLOXACIN 250MG (CIPROFLOXACIN) 250MG [Suspect]
     Active Substance: CIPROFLOXACIN
     Indication: PROSTATE INFECTION
     Route: 048
     Dates: start: 20131024, end: 20140120

REACTIONS (11)
  - Musculoskeletal pain [None]
  - Arthralgia [None]
  - Neck pain [None]
  - Hyperhidrosis [None]
  - Fatigue [None]
  - Headache [None]
  - Myalgia [None]
  - Dizziness [None]
  - Migraine [None]
  - Palpitations [None]
  - Muscle twitching [None]

NARRATIVE: CASE EVENT DATE: 20131210
